FAERS Safety Report 9495715 (Version 1)
Quarter: 2013Q3

REPORT INFORMATION
  Report Type: Spontaneous
  Country: JP (occurrence: JP)
  Receive Date: 20130903
  Receipt Date: 20130903
  Transmission Date: 20140515
  Serious: Yes (Hospitalization)
  Sender: FDA-Public Use
  Company Number: JP-009507513-1309JPN000885

PATIENT
  Sex: Female

DRUGS (3)
  1. FOSAMAC TABLETS 35MG [Suspect]
     Dosage: DAILY DOSAGE UNKNOWN
     Route: 048
  2. METOLATE [Concomitant]
     Dosage: 2 MG, QW
     Route: 048
  3. RHEUMATREX [Concomitant]
     Dosage: DAILY DOSE UNKNOWN
     Route: 048

REACTIONS (3)
  - Fracture [Unknown]
  - Tooth extraction [Unknown]
  - Abdominal distension [Unknown]
